FAERS Safety Report 10075368 (Version 1)
Quarter: 2014Q2

REPORT INFORMATION
  Report Type: Spontaneous
  Country: US (occurrence: US)
  Receive Date: 20140414
  Receipt Date: 20140414
  Transmission Date: 20141212
  Serious: No
  Sender: FDA-Public Use
  Company Number: US-009507513-1404USA005863

PATIENT
  Age: 71 Year
  Sex: Female
  Weight: 62.59 kg

DRUGS (1)
  1. MEVACOR TABLET [Suspect]
     Indication: BLOOD CHOLESTEROL INCREASED
     Dosage: UNK
     Dates: start: 201103

REACTIONS (3)
  - Blood triglycerides increased [Unknown]
  - Blood cholesterol increased [Unknown]
  - Drug ineffective [Unknown]
